FAERS Safety Report 6713128-8 (Version None)
Quarter: 2010Q2

REPORT INFORMATION
  Report Type: 
  Country: None (occurrence: None)
  Receive Date: 20100506
  Receipt Date: 20091019
  Transmission Date: 20101027
  Serious: No
  Sender: FDA-Public Use
  Company Number: A0812387A

PATIENT
  Sex: Female

DRUGS (1)
  1. AMOXICILLIN [Suspect]
     Dosage: 500MG THREE TIMES PER DAY
     Route: 048
     Dates: start: 20040101

REACTIONS (1)
  - DRUG INEFFECTIVE [None]
